FAERS Safety Report 16904148 (Version 1)
Quarter: 2019Q4

REPORT INFORMATION
  Report Type: Spontaneous
  Country: NL (occurrence: DE)
  Receive Date: 20191010
  Receipt Date: 20191010
  Transmission Date: 20200122
  Serious: Yes (Death, Other)
  Sender: FDA-Public Use
  Company Number: DE-FRESENIUS KABI-FK201910863

PATIENT
  Age: 69 Year
  Sex: Male
  Weight: 82 kg

DRUGS (3)
  1. PEMBROLIZUMAB. [Interacting]
     Active Substance: PEMBROLIZUMAB
     Indication: ADENOCARCINOMA OF COLON
     Dosage: 200,0MG
     Route: 042
     Dates: start: 20190903, end: 20190903
  2. PEMETREXED. [Interacting]
     Active Substance: PEMETREXED
     Indication: ADENOCARCINOMA OF COLON
     Dosage: 995,0 MG
     Route: 042
     Dates: start: 20190903, end: 20190903
  3. CARBOPLATIN (MANUFACTURER UNKNOWN) [Suspect]
     Active Substance: CARBOPLATIN
     Indication: ADENOCARCINOMA OF COLON
     Dosage: 442,6 MG
     Route: 042
     Dates: start: 20190903, end: 20190903

REACTIONS (12)
  - Thrombocytopenia [Unknown]
  - Acute kidney injury [Unknown]
  - Acinetobacter infection [Fatal]
  - Leukopenia [Fatal]
  - Diarrhoea [Recovered/Resolved]
  - Hypophagia [Unknown]
  - Dehydration [Unknown]
  - Drug interaction [Unknown]
  - Nausea [Unknown]
  - Neutropenia [Fatal]
  - Sepsis [Fatal]
  - Vomiting [Unknown]

NARRATIVE: CASE EVENT DATE: 20190904
